FAERS Safety Report 9771904 (Version 1)
Quarter: 2013Q4

REPORT INFORMATION
  Report Type: Report from Study
  Country: US (occurrence: US)
  Receive Date: 20131219
  Receipt Date: 20131219
  Transmission Date: 20140711
  Serious: Yes (Death, Other)
  Sender: FDA-Public Use
  Company Number: US-ROCHE-1321088

PATIENT
  Age: 39 Year
  Sex: Male

DRUGS (1)
  1. AVASTIN [Suspect]
     Indication: BRAIN NEOPLASM
     Dosage: 2 TREATMENTS RECEIVED
     Route: 065

REACTIONS (2)
  - Death [Fatal]
  - Tumour haemorrhage [Unknown]
